FAERS Safety Report 19382370 (Version 1)
Quarter: 2021Q2

REPORT INFORMATION
  Report Type: Spontaneous
  Country: NL (occurrence: NL)
  Receive Date: 20210607
  Receipt Date: 20210607
  Transmission Date: 20210717
  Serious: Yes (Hospitalization)
  Sender: FDA-Public Use
  Company Number: NL-ASTRAZENECA-2021A483810

PATIENT
  Sex: Female
  Weight: 55 kg

DRUGS (5)
  1. MONTELUKAST TABLET OMHULD 10MG / SINGULAIR TABLET OMHULD 10MG [Concomitant]
     Dosage: OMHULDE TABLET, 10 MG (MILLIGRAM)
     Route: 065
  2. QUETIAPINE TABLET FO  25MG / BRAND NAME NOT SPECIFIED [Suspect]
     Active Substance: QUETIAPINE
     Indication: INSOMNIA
     Route: 065
     Dates: start: 20210401, end: 20210414
  3. CLEMASTINE TABLET 1MG / BRAND NAME NOT SPECIFIED [Concomitant]
     Dosage: TABLET, 1 MG (MILLIGRAM)
     Route: 065
  4. SALMETEROL/FLUTICASON AEROSOL 25/250UG/DO / SERETIDE AEROSOL 25/250... [Concomitant]
     Dosage: AEROSOL, 25/250 ??G/DOSIS (MICROGRAM PER DOSIS)
     Route: 065
  5. ZOLPIDEM TABLET 10MG / STILNOCT TABLET FILMOMHULD 10MG [Concomitant]
     Dosage: TABLET, 10 MG (MILLIGRAM)
     Route: 065

REACTIONS (9)
  - Suicidal ideation [Recovered/Resolved]
  - Feeling abnormal [Recovered/Resolved]
  - Hyperhidrosis [Recovered/Resolved]
  - Weight increased [Recovered/Resolved]
  - Panic attack [Recovered/Resolved]
  - Tremor [Recovered/Resolved]
  - Anxiety [Recovered/Resolved]
  - Restlessness [Recovered/Resolved]
  - Headache [Recovered/Resolved]
